FAERS Safety Report 7320314-5 (Version None)
Quarter: 2011Q1

REPORT INFORMATION
  Report Type: 
  Country: None (occurrence: None)
  Receive Date: 20110228
  Receipt Date: 20110216
  Transmission Date: 20110831
  Serious: Yes (Other)
  Sender: FDA-Public Use
  Company Number: US-ELI_LILLY_AND_COMPANY-US201009000510

PATIENT
  Sex: Female

DRUGS (1)
  1. FORTEO [Suspect]
     Indication: OSTEOPOROSIS
     Dosage: 20 UG, DAILY (1/D)
     Route: 058
     Dates: start: 20100830

REACTIONS (6)
  - DIZZINESS [None]
  - FATIGUE [None]
  - LUNG NEOPLASM MALIGNANT [None]
  - TREMOR [None]
  - MALAISE [None]
  - ASTHENIA [None]
